FAERS Safety Report 8283059-3 (Version None)
Quarter: 2012Q2

REPORT INFORMATION
  Report Type: 
  Country: None (occurrence: None)
  Receive Date: 20120413
  Receipt Date: 20120409
  Transmission Date: 20120825
  Serious: Yes (Other)
  Sender: FDA-Public Use
  Company Number: US-FRI-1000029674

PATIENT
  Age: 20 Year
  Sex: Female

DRUGS (3)
  1. MULTI-VITAMINS [Concomitant]
  2. LEXAPRO [Suspect]
     Indication: OBSESSIVE-COMPULSIVE DISORDER
     Dosage: 10 MG
     Route: 048
     Dates: start: 20100101
  3. CALCIUM CARBONATE [Concomitant]

REACTIONS (2)
  - STRESS FRACTURE [None]
  - OFF LABEL USE [None]
